FAERS Safety Report 4418080-6 (Version None)
Quarter: 2004Q3

REPORT INFORMATION
  Report Type: 
  Country: None (occurrence: None)
  Receive Date: 20040803
  Receipt Date: 20040722
  Transmission Date: 20050211
  Serious: Yes (Death)
  Sender: FDA-Public Use
  Company Number: T01-USA-01326-01

PATIENT
  Age: 0 Day
  Sex: Male
  Weight: 0.695 kg

DRUGS (4)
  1. INFASURF (UNBLINDED THERAPY) (CALFACTANT) [Suspect]
     Indication: ACUTE RESPIRATORY DISTRESS SYNDROME
     Dosage: 1 UNITS ONCE TRACH
     Dates: start: 20010624, end: 20010624
  2. DOPAMINE HCL [Concomitant]
  3. DOBUTAMINE [Concomitant]
  4. DECADRON [Concomitant]

REACTIONS (6)
  - HAEMATOCRIT DECREASED [None]
  - INTRAVENTRICULAR HAEMORRHAGE NEONATAL [None]
  - NEONATAL DISORDER [None]
  - PERIVENTRICULAR LEUKOMALACIA [None]
  - PULMONARY HAEMORRHAGE [None]
  - RESPIRATORY ACIDOSIS [None]
